FAERS Safety Report 25359044 (Version 1)
Quarter: 2025Q2

REPORT INFORMATION
  Report Type: Spontaneous
  Country: US (occurrence: US)
  Receive Date: 20250526
  Receipt Date: 20250526
  Transmission Date: 20250717
  Serious: Yes (Other)
  Sender: SANOFI AVENTIS
  Company Number: US-SA-2025SA148956

PATIENT
  Age: 56 Year
  Sex: Male
  Weight: 93.64 kg

DRUGS (4)
  1. DUPIXENT [Suspect]
     Active Substance: DUPILUMAB
     Indication: Dermatitis atopic
     Dosage: 300 MG, QOW
     Route: 058
     Dates: end: 202502
  2. DUPIXENT [Suspect]
     Active Substance: DUPILUMAB
     Dates: start: 2025
  3. VITAMINS [Concomitant]
     Active Substance: VITAMINS
  4. ALLEGRA ALLERGY [Concomitant]
     Active Substance: FEXOFENADINE HYDROCHLORIDE

REACTIONS (2)
  - Bladder cancer [Unknown]
  - Eczema [Unknown]

NARRATIVE: CASE EVENT DATE: 20250101
